FAERS Safety Report 11392872 (Version 1)
Quarter: 2015Q3

REPORT INFORMATION
  Report Type: Spontaneous
  Country: FR (occurrence: FR)
  Receive Date: 20150818
  Receipt Date: 20150818
  Transmission Date: 20151125
  Serious: Yes (Life-Threatening)
  Sender: FDA-Public Use
  Company Number: FR-PFIZER INC-2015270080

PATIENT
  Age: 72 Year
  Sex: Male

DRUGS (22)
  1. PREVISCAN /00261401/ [Concomitant]
     Active Substance: PENTOXIFYLLINE
  2. TRINITRINE [Concomitant]
     Active Substance: NITROGLYCERIN
  3. VERSATIS [Concomitant]
     Active Substance: LIDOCAINE
  4. SPORANOX [Suspect]
     Active Substance: ITRACONAZOLE\SODIUM CHLORIDE
     Indication: ASPERGILLUS INFECTION
     Dosage: UNK
     Route: 048
     Dates: start: 20150608, end: 20150618
  5. TAMSULOSINE [Concomitant]
     Active Substance: TAMSULOSIN HYDROCHLORIDE
  6. FORLAX [Concomitant]
     Active Substance: POLYETHYLENE GLYCOL 4000
  7. OXYNORM [Concomitant]
     Active Substance: OXYCODONE HYDROCHLORIDE
  8. LASILIX /00032601/ [Concomitant]
     Active Substance: FUROSEMIDE
  9. VERAPAMIL [Concomitant]
     Active Substance: VERAPAMIL HYDROCHLORIDE
  10. TRIATEC /00116401/ [Concomitant]
     Active Substance: HYDROCHLOROTHIAZIDE
  11. OXYCONTIN [Concomitant]
     Active Substance: OXYCODONE HYDROCHLORIDE
  12. TRAMADOL. [Concomitant]
     Active Substance: TRAMADOL
  13. TAZOCILLINE [Suspect]
     Active Substance: PIPERACILLIN SODIUM\TAZOBACTAM SODIUM
     Indication: CHRONIC OBSTRUCTIVE PULMONARY DISEASE
     Dosage: UNK
     Route: 042
     Dates: start: 20150515, end: 20150615
  14. AERIUS [Concomitant]
     Active Substance: DESLORATADINE
  15. KARDEGIC [Concomitant]
     Active Substance: ASPIRIN LYSINE
  16. DOLIPRANE [Concomitant]
     Active Substance: ACETAMINOPHEN
  17. SPIRIVA [Concomitant]
     Active Substance: TIOTROPIUM BROMIDE MONOHYDRATE
  18. TAZOCILLINE [Suspect]
     Active Substance: PIPERACILLIN SODIUM\TAZOBACTAM SODIUM
     Indication: BRONCHITIS
  19. LEVOTHYROX [Concomitant]
     Active Substance: LEVOTHYROXINE
  20. VENTOLINE /00139501/ [Concomitant]
     Active Substance: ALBUTEROL
  21. ONBREZ [Concomitant]
     Active Substance: INDACATEROL
  22. ACUPAN [Concomitant]
     Active Substance: NEFOPAM HYDROCHLORIDE

REACTIONS (1)
  - Cardiac failure [Recovered/Resolved]

NARRATIVE: CASE EVENT DATE: 20150617
